FAERS Safety Report 16844275 (Version 1)
Quarter: 2019Q3

REPORT INFORMATION
  Report Type: Spontaneous
  Country: CA (occurrence: CA)
  Receive Date: 20190924
  Receipt Date: 20190924
  Transmission Date: 20191005
  Serious: Yes (Life-Threatening)
  Sender: FDA-Public Use
  Company Number: CA-PFIZER INC-2019411739

PATIENT
  Sex: Male

DRUGS (7)
  1. ACETAMINOPHEN AND CODEINE [Interacting]
     Active Substance: ACETAMINOPHEN\CODEINE PHOSPHATE
     Indication: ANKLE FRACTURE
     Dosage: UNK
     Route: 048
  2. CEFUROXIME. [Concomitant]
     Active Substance: CEFUROXIME
     Dosage: UNK
  3. CLINDAMYCIN. [Concomitant]
     Active Substance: CLINDAMYCIN
     Dosage: UNK
  4. LEVOMEPROMAZINE [Interacting]
     Active Substance: LEVOMEPROMAZINE
     Indication: ANKLE FRACTURE
     Dosage: UNK
     Route: 048
  5. METHADOSE SUGAR-FREE [Interacting]
     Active Substance: METHADONE HYDROCHLORIDE
     Indication: DRUG DEPENDENCE
     Dosage: 50 MG, 1X/DAY
     Route: 048
  6. CIPROFLOXACIN. [Suspect]
     Active Substance: CIPROFLOXACIN
     Indication: PNEUMONIA ASPIRATION
     Dosage: 400 MG, 2X/DAY
     Route: 042
  7. MORPHINE SULFATE. [Interacting]
     Active Substance: MORPHINE SULFATE
     Indication: ANKLE FRACTURE
     Dosage: 2 MG, UNK
     Route: 042

REACTIONS (3)
  - Respiratory depression [Recovered/Resolved]
  - Toxicity to various agents [Recovered/Resolved]
  - Drug interaction [Recovered/Resolved]
